FAERS Safety Report 19666462 (Version 2)
Quarter: 2021Q3

REPORT INFORMATION
  Report Type: Report from Study
  Country: JP (occurrence: JP)
  Receive Date: 20210806
  Receipt Date: 20210909
  Transmission Date: 20211014
  Serious: Yes (Hospitalization, Other)
  Sender: FDA-Public Use
  Company Number: JP-ASTELLAS-2021JP011933

PATIENT
  Age: 72 Year
  Sex: Male
  Weight: 62 kg

DRUGS (6)
  1. ASP015K [Suspect]
     Active Substance: PEFICITINIB
     Indication: RHEUMATOID ARTHRITIS
     Route: 048
     Dates: start: 20210623, end: 20210709
  2. MEROPENEM. [Concomitant]
     Active Substance: MEROPENEM
     Indication: PROSTATITIS
     Dosage: UNK UNK, UNKNOWN FREQ.
     Route: 065
     Dates: start: 20210709
  3. ASP015K [Suspect]
     Active Substance: PEFICITINIB
     Route: 048
     Dates: start: 20210718, end: 20210721
  4. ORENCIA [Concomitant]
     Active Substance: ABATACEPT
     Indication: RHEUMATOID ARTHRITIS
     Dosage: UNK UNK, UNKNOWN FREQ.
     Route: 065
  5. PROGRAF [Suspect]
     Active Substance: TACROLIMUS
     Indication: RHEUMATOID ARTHRITIS
     Dosage: 3 MG/DAY, UNKNOWN FREQ.
     Route: 048
  6. PREDNISOLONE. [Suspect]
     Active Substance: PREDNISOLONE
     Indication: RHEUMATOID ARTHRITIS
     Dosage: 10 MG/DAY, UNKNOWN FREQ.
     Route: 048

REACTIONS (4)
  - Pneumonia [Recovered/Resolved]
  - Physical deconditioning [Unknown]
  - Interstitial lung disease [Recovered/Resolved]
  - Prostatitis [Recovered/Resolved]

NARRATIVE: CASE EVENT DATE: 20210709
